FAERS Safety Report 22209397 (Version 2)
Quarter: 2023Q2

REPORT INFORMATION
  Report Type: Report from Study
  Country: US (occurrence: US)
  Receive Date: 20230414
  Receipt Date: 20230425
  Transmission Date: 20230721
  Serious: Yes (Hospitalization, Other)
  Sender: FDA-Public Use
  Company Number: US-ACADIA PHARMACEUTICALS INC.-ACA-2023-PIM-001328

PATIENT
  Age: 78 Year
  Sex: Male

DRUGS (4)
  1. NUPLAZID [Suspect]
     Active Substance: PIMAVANSERIN TARTRATE
     Indication: Parkinson^s disease psychosis
     Dosage: 34 MILLIGRAM, QD
     Route: 048
     Dates: start: 202301, end: 20230222
  2. DEPAKOTE [Concomitant]
     Active Substance: DIVALPROEX SODIUM
  3. SINEMET [Concomitant]
     Active Substance: CARBIDOPA\LEVODOPA
  4. DIOVAN [Concomitant]
     Active Substance: VALSARTAN

REACTIONS (5)
  - Pneumonia [Unknown]
  - Sepsis [Unknown]
  - Product dose omission issue [Unknown]
  - Fall [Recovered/Resolved]
  - Drug ineffective [Unknown]

NARRATIVE: CASE EVENT DATE: 20230222
